FAERS Safety Report 23703356 (Version 1)
Quarter: 2024Q2

REPORT INFORMATION
  Report Type: Spontaneous
  Country: US (occurrence: US)
  Receive Date: 20240403
  Receipt Date: 20240403
  Transmission Date: 20240716
  Serious: No
  Sender: FDA-Public Use
  Company Number: US-ABBVIE-5703904

PATIENT
  Sex: Female

DRUGS (1)
  1. VANIQA [Suspect]
     Active Substance: EFLORNITHINE HYDROCHLORIDE
     Indication: Product used for unknown indication
     Dosage: FORM STRENGTH: EFLORNITHINE HCL 13.9% CREAM
     Route: 065

REACTIONS (3)
  - Hair texture abnormal [Unknown]
  - Hypotrichosis [Unknown]
  - Facial pain [Unknown]
